FAERS Safety Report 8162639-X (Version None)
Quarter: 2012Q1

REPORT INFORMATION
  Report Type: 
  Country: None (occurrence: None)
  Receive Date: 20120224
  Receipt Date: 20120216
  Transmission Date: 20120608
  Serious: Yes (Death, Hospitalization)
  Sender: FDA-Public Use
  Company Number: DE-UCBSA-046565

PATIENT
  Age: 65 Year
  Sex: Female
  Weight: 64 kg

DRUGS (14)
  1. OMEPRAZOLE [Concomitant]
     Indication: PROPHYLAXIS AGAINST GASTROINTESTINAL ULCER
     Route: 048
     Dates: start: 20000101
  2. CIMZIA [Suspect]
     Indication: RHEUMATOID ARTHRITIS
     Dosage: NUMBER OF DOSES RECIEVED 4
     Route: 058
     Dates: start: 20110110, end: 20110225
  3. VOLTAREN SUPP [Concomitant]
     Indication: RHEUMATOID ARTHRITIS
     Route: 054
     Dates: start: 19800101
  4. KINERET [Concomitant]
     Indication: RHEUMATOID ARTHRITIS
     Route: 058
     Dates: start: 20080827, end: 20110112
  5. KINERET [Concomitant]
     Route: 058
     Dates: start: 20110314
  6. METHYLPREDNISOLONE [Concomitant]
     Indication: RHEUMATOID ARTHRITIS
     Route: 048
     Dates: start: 19800101
  7. FRAXIPARIN [Concomitant]
     Indication: ATRIAL FIBRILLATION
     Route: 058
     Dates: start: 20090302
  8. CALCIDOC [Concomitant]
     Indication: OSTEOPOROSIS
     Dosage: 600/4.0 MG ONCE PER DAY
     Route: 048
     Dates: start: 20090624
  9. DIPYRONE TAB [Concomitant]
     Indication: RHEUMATOID ARTHRITIS
     Route: 048
     Dates: start: 20110217
  10. GENTAMICIN [Concomitant]
     Indication: FURUNCLE
     Route: 061
     Dates: start: 20110501, end: 20110501
  11. L-THYROX [Concomitant]
     Indication: GOITRE
     Route: 048
     Dates: start: 20000101
  12. LEVOFLOXACIN [Concomitant]
     Indication: ANTIBIOTIC PROPHYLAXIS
     Dates: start: 20110311
  13. AMPHOTERICIN B [Concomitant]
     Indication: STOMATITIS
     Dates: start: 20110225
  14. PROLIA [Concomitant]
     Indication: OSTEOPOROSIS
     Route: 058
     Dates: start: 20100604

REACTIONS (4)
  - LEUKOPENIA [None]
  - CARDIAC FAILURE [None]
  - CARDIAC ARREST [None]
  - ARTHROPATHY [None]
